FAERS Safety Report 10258696 (Version 2)
Quarter: 2014Q2

REPORT INFORMATION
  Report Type: Spontaneous
  Country: US (occurrence: US)
  Receive Date: 20140625
  Receipt Date: 20140625
  Transmission Date: 20141212
  Serious: No
  Sender: FDA-Public Use
  Company Number: US-ASTELLAS-2013US009414

PATIENT
  Sex: Female

DRUGS (1)
  1. VESICARE [Suspect]
     Indication: NEUROGENIC BLADDER
     Route: 048
     Dates: start: 2010, end: 2010

REACTIONS (1)
  - Drug ineffective for unapproved indication [Unknown]
